FAERS Safety Report 5054358-3 (Version None)
Quarter: 2006Q2

REPORT INFORMATION
  Report Type: 
  Country: None (occurrence: None)
  Receive Date: 20060616
  Receipt Date: 20060525
  Transmission Date: 20061013
  Serious: Yes (Life-Threatening, Hospitalization, Other)
  Sender: FDA-Public Use
  Company Number: 224777

PATIENT
  Age: 46 Year
  Sex: Female
  Weight: 59 kg

DRUGS (3)
  1. AVASTIN [Suspect]
     Indication: OVARIAN CANCER
     Dosage: 10 MG/KG, 1/WEEK, INTRAVENOUS
     Route: 042
     Dates: start: 20060404
  2. CYTOXAN [Concomitant]
  3. HYPERALIMENTATION (HYPERALIMENTATION) [Concomitant]

REACTIONS (1)
  - INTESTINAL PERFORATION [None]
